FAERS Safety Report 6866985-9 (Version None)
Quarter: 2010Q3

REPORT INFORMATION
  Report Type: 
  Country: None (occurrence: None)
  Receive Date: 20100722
  Receipt Date: 20100712
  Transmission Date: 20110219
  Serious: Yes (Other)
  Sender: FDA-Public Use
  Company Number: FR-CELGENEUS-056-21880-10061336

PATIENT
  Sex: Female

DRUGS (4)
  1. REVLIMID [Suspect]
     Route: 048
     Dates: start: 20091101
  2. DEXAMETHASONE [Concomitant]
     Route: 065
     Dates: start: 20091101
  3. TEGELINE [Concomitant]
     Route: 065
     Dates: start: 20091101
  4. ZOLEDRONIC ACID [Concomitant]
     Indication: PRODUCT USED FOR UNKNOWN INDICATION
     Route: 065
     Dates: start: 20091101

REACTIONS (9)
  - BRONCHITIS [None]
  - DIZZINESS [None]
  - DRY SKIN [None]
  - NAUSEA [None]
  - OEDEMA PERIPHERAL [None]
  - PRURITUS [None]
  - SKIN EXFOLIATION [None]
  - ULCERATIVE KERATITIS [None]
  - VOMITING [None]
